FAERS Safety Report 7585497-0 (Version None)
Quarter: 2011Q2

REPORT INFORMATION
  Report Type: 
  Country: None (occurrence: None)
  Receive Date: 20110624
  Receipt Date: 20110531
  Transmission Date: 20111010
  Serious: Yes (Other)
  Sender: FDA-Public Use
  Company Number: CIO11010222

PATIENT
  Age: 16 Year
  Sex: Female

DRUGS (1)
  1. DAYQUIL MUCUS CONTROL DM, CITRUS BLEND FLAVOR (GUAIFENESIN 400 MG, DEX [Suspect]
     Dosage: ORAL
     Route: 048

REACTIONS (1)
  - ANAPHYLACTIC REACTION [None]
